FAERS Safety Report 4878656-9 (Version None)
Quarter: 2006Q1

REPORT INFORMATION
  Report Type: 
  Country: None (occurrence: None)
  Receive Date: 20060110
  Receipt Date: 20051230
  Transmission Date: 20060701
  Serious: Yes (Hospitalization, Other)
  Sender: FDA-Public Use
  Company Number: KII-2005-0020499

PATIENT
  Sex: Female

DRUGS (4)
  1. MORPHINE SULFATE [Suspect]
     Dosage: ORAL
     Route: 048
  2. CARISOPRODOL [Suspect]
     Dosage: ORAL
     Route: 048
  3. COCAINE(COCAINE) [Suspect]
     Indication: INTENTIONAL DRUG MISUSE
  4. BENZODIAZEPINE DERIVATIVES() [Suspect]

REACTIONS (13)
  - ACIDOSIS [None]
  - BLOOD PRESSURE DECREASED [None]
  - BRADYCARDIA [None]
  - BREATH SOUNDS ABNORMAL [None]
  - COMA [None]
  - DRUG ABUSER [None]
  - LOSS OF CONSCIOUSNESS [None]
  - MULTIPLE DRUG OVERDOSE [None]
  - PUPIL FIXED [None]
  - SINUS TACHYCARDIA [None]
  - SOMNOLENCE [None]
  - URINE OUTPUT DECREASED [None]
  - UROSEPSIS [None]
